FAERS Safety Report 6590624-8 (Version None)
Quarter: 2010Q1

REPORT INFORMATION
  Report Type: 
  Country: None (occurrence: None)
  Receive Date: 20100219
  Receipt Date: 20100210
  Transmission Date: 20100710
  Serious: Yes (Hospitalization)
  Sender: FDA-Public Use
  Company Number: A0844334A

PATIENT
  Age: 61 Year
  Sex: Male
  Weight: 72.7 kg

DRUGS (5)
  1. PAZOPANIB [Suspect]
     Indication: METASTATIC RENAL CELL CARCINOMA
     Dosage: 800MG PER DAY
     Route: 048
     Dates: start: 20090810, end: 20100126
  2. VICODIN [Concomitant]
     Dates: start: 20091006
  3. ADVAIR DISKUS 100/50 [Concomitant]
  4. NORVASC [Concomitant]
     Dates: start: 20090914
  5. SINGULAIR [Concomitant]

REACTIONS (3)
  - CEREBRAL HAEMORRHAGE [None]
  - METASTASES TO CENTRAL NERVOUS SYSTEM [None]
  - SPEECH DISORDER [None]
